FAERS Safety Report 6767962-9 (Version None)
Quarter: 2010Q2

REPORT INFORMATION
  Report Type: 
  Country: None (occurrence: None)
  Receive Date: 20100614
  Receipt Date: 20100530
  Transmission Date: 20101027
  Serious: Yes (Hospitalization, Other)
  Sender: FDA-Public Use
  Company Number: IL-ELI_LILLY_AND_COMPANY-IL201006000695

PATIENT
  Age: 28 Year
  Sex: Male

DRUGS (2)
  1. ZYPREXA [Suspect]
     Dosage: UNK UNK, UNKNOWN
     Route: 048
     Dates: end: 20100421
  2. DEPALEPT [Concomitant]

REACTIONS (2)
  - TYPE 2 DIABETES MELLITUS [None]
  - WEIGHT DECREASED [None]
